FAERS Safety Report 6478496-3 (Version None)
Quarter: 2009Q4

REPORT INFORMATION
  Report Type: 
  Country: None (occurrence: None)
  Receive Date: 20091202
  Receipt Date: 20091125
  Transmission Date: 20100525
  Serious: Yes (Life-Threatening, Hospitalization, Other)
  Sender: FDA-Public Use
  Company Number: 2007-155459-NL

PATIENT
  Age: 69 Year
  Sex: Female
  Weight: 85 kg

DRUGS (7)
  1. ROCURONIUM BROMIDE [Suspect]
     Indication: MUSCLE RELAXANT THERAPY
     Dosage: 40 MG;IV
     Route: 042
     Dates: start: 20070212, end: 20070212
  2. AMLODIPINE [Concomitant]
  3. ASPIRIN [Concomitant]
  4. ATENOLOL [Concomitant]
  5. BENDROFLUAZIDE [Concomitant]
  6. IBUPROFEN [Concomitant]
  7. RAMIPRIL [Concomitant]

REACTIONS (4)
  - BRONCHOSPASM [None]
  - CARDIAC DISORDER [None]
  - CIRCULATORY COLLAPSE [None]
  - HYPOTENSION [None]
